FAERS Safety Report 9563332 (Version 2)
Quarter: 2014Q1

REPORT INFORMATION
  Report Type: Spontaneous
  Country: GB (occurrence: GB)
  Receive Date: 20130927
  Receipt Date: 20140117
  Transmission Date: 20141002
  Serious: Yes (Death, Other)
  Sender: FDA-Public Use
  Company Number: GB-009507513-1309GBR012749

PATIENT
  Age: 80 Year
  Sex: Female

DRUGS (10)
  1. ALENDRONATE SODIUM [Suspect]
     Indication: OSTEOPOROSIS
     Dosage: 70 MG, 1/1 WEEKS
     Route: 048
     Dates: start: 20040225, end: 20120329
  2. ADCAL-D3 [Concomitant]
  3. AMLODIPINE [Concomitant]
  4. ASPIRIN [Concomitant]
  5. DIGOXIN [Concomitant]
  6. FERROUS FUMARATE [Concomitant]
  7. LISINOPRIL [Concomitant]
  8. OMEPRAZOLE [Concomitant]
  9. PREGABALIN [Concomitant]
  10. SIMVASTATIN [Concomitant]

REACTIONS (1)
  - Oesophageal carcinoma [Fatal]
